FAERS Safety Report 10779001 (Version 3)
Quarter: 2016Q1

REPORT INFORMATION
  Report Type: Spontaneous
  Country: JP (occurrence: JP)
  Receive Date: 20150210
  Receipt Date: 20160225
  Transmission Date: 20160525
  Serious: Yes (Hospitalization)
  Sender: FDA-Public Use
  Company Number: JP-ROCHE-1532289

PATIENT
  Age: 9 Year
  Sex: Male
  Weight: 20 kg

DRUGS (8)
  1. TEGRETOL [Concomitant]
     Active Substance: CARBAMAZEPINE
     Dosage: DOSAGE IS UNCERTAIN.
     Route: 048
     Dates: start: 2011
  2. NU-LOTAN [Concomitant]
     Active Substance: LOSARTAN POTASSIUM
     Dosage: DOSAGE IS UNCERTAIN.
     Route: 048
     Dates: start: 201410
  3. MAGMITT [Concomitant]
     Active Substance: MAGNESIUM OXIDE
     Dosage: DOSAGE IS UNCERTAIN.
     Route: 048
  4. ENSURE [Concomitant]
     Active Substance: AMINO ACIDS\DEXTROSE\ELECTROLYTES NOS\SOYBEAN OIL\VITAMINS
     Dosage: DOSAGE IS UNCERTAIN.
     Route: 065
     Dates: start: 201410
  5. LEVETIRACETAM. [Concomitant]
     Active Substance: LEVETIRACETAM
     Indication: EPILEPSY
     Dosage: DOSAGE IS UNCERTAIN.
     Route: 048
     Dates: start: 20141020
  6. CORTRIL [Concomitant]
     Active Substance: HYDROCORTISONE
     Dosage: DOSAGE IS UNCERTAIN.
     Route: 048
     Dates: start: 2009
  7. AVASTIN [Suspect]
     Active Substance: BEVACIZUMAB
     Indication: BRAIN NEOPLASM
     Route: 041
     Dates: start: 20140424, end: 20141127
  8. WARFARIN [Concomitant]
     Active Substance: WARFARIN
     Route: 048

REACTIONS (7)
  - Haematemesis [Recovering/Resolving]
  - Nausea [Unknown]
  - Ileus [Unknown]
  - Urinary retention [Unknown]
  - Tumour haemorrhage [Unknown]
  - Haematuria [Recovering/Resolving]
  - Urinary bladder haemorrhage [Unknown]

NARRATIVE: CASE EVENT DATE: 20141128
